FAERS Safety Report 9831794 (Version 1)
Quarter: 2014Q1

REPORT INFORMATION
  Report Type: Spontaneous
  Country: US (occurrence: US)
  Receive Date: 20140121
  Receipt Date: 20140121
  Transmission Date: 20141002
  Serious: Yes (Hospitalization, Other)
  Sender: FDA-Public Use
  Company Number: US-ELI_LILLY_AND_COMPANY-US201401006957

PATIENT
  Age: 30 Year
  Sex: Male

DRUGS (5)
  1. PROZAC [Suspect]
     Indication: DEPRESSION
     Dosage: 20 MG, EACH MORNING
     Route: 065
  2. TRAZODONE [Suspect]
     Dosage: 50 MG, EACH EVENING
     Route: 065
  3. TRAZODONE [Suspect]
     Dosage: 250 MG, EACH EVENING
     Route: 065
  4. DISULFIRAM [Concomitant]
     Dosage: 500 MG, QD
     Route: 065
  5. DIAZEPAM [Concomitant]
     Dosage: UNK, UNKNOWN
     Route: 065

REACTIONS (11)
  - Poisoning [Recovered/Resolved]
  - Suicidal ideation [Recovered/Resolved]
  - Drug abuse [Unknown]
  - Drug dependence [Unknown]
  - Pressure of speech [Unknown]
  - Clumsiness [Unknown]
  - Irritability [Unknown]
  - Euphoric mood [Recovered/Resolved]
  - Lethargy [Unknown]
  - Memory impairment [Unknown]
  - Tremor [Unknown]
